FAERS Safety Report 16962283 (Version 1)
Quarter: 2019Q4

REPORT INFORMATION
  Report Type: Spontaneous
  Country: EG (occurrence: EG)
  Receive Date: 20191025
  Receipt Date: 20191025
  Transmission Date: 20200122
  Serious: Yes (Hospitalization, Other)
  Sender: FDA-Public Use
  Company Number: EG-ROCHE-2444666

PATIENT
  Age: 31 Year
  Sex: Female

DRUGS (12)
  1. AVASTIN [Suspect]
     Active Substance: BEVACIZUMAB
     Indication: TRIPLE NEGATIVE BREAST CANCER
     Dosage: DAY 1
     Route: 065
     Dates: start: 20180408
  2. ZOLADEX [Suspect]
     Active Substance: GOSERELIN ACETATE
     Indication: PRODUCT USED FOR UNKNOWN INDICATION
     Route: 058
     Dates: start: 20171201
  3. PROLIA [Suspect]
     Active Substance: DENOSUMAB
     Indication: TRIPLE NEGATIVE BREAST CANCER
     Route: 058
  4. TECENTRIQ [Suspect]
     Active Substance: ATEZOLIZUMAB
     Indication: TRIPLE NEGATIVE BREAST CANCER
     Dosage: D1
     Route: 041
     Dates: start: 20180514
  5. HALAVEN [Suspect]
     Active Substance: ERIBULIN MESYLATE
     Indication: PRODUCT USED FOR UNKNOWN INDICATION
     Dosage: D1+8
     Route: 042
     Dates: start: 20190516
  6. GEMCITABINE. [Suspect]
     Active Substance: GEMCITABINE
     Indication: TRIPLE NEGATIVE BREAST CANCER
     Dosage: DAYS 1 AND 8
     Route: 042
  7. ZOLADEX [Suspect]
     Active Substance: GOSERELIN ACETATE
     Route: 058
     Dates: start: 20190516
  8. TECENTRIQ [Suspect]
     Active Substance: ATEZOLIZUMAB
     Dosage: D1
     Route: 042
     Dates: start: 20190516
  9. XELODA [Suspect]
     Active Substance: CAPECITABINE
     Indication: TRIPLE NEGATIVE BREAST CANCER
     Dosage: D1-14
     Route: 048
  10. CARBOPLATIN. [Suspect]
     Active Substance: CARBOPLATIN
     Indication: TRIPLE NEGATIVE BREAST CANCER
     Dosage: AUC 5 DAY 1
     Route: 042
  11. CARBOPLATIN. [Suspect]
     Active Substance: CARBOPLATIN
     Dosage: AUC 2  FOR 3 WEEKS
     Route: 042
  12. PROLIA [Suspect]
     Active Substance: DENOSUMAB
     Route: 058
     Dates: start: 20190516

REACTIONS (12)
  - Breast neoplasm [Unknown]
  - Metastases to lymph nodes [Unknown]
  - Lymphadenopathy [Unknown]
  - Breast mass [Unknown]
  - Lymphadenopathy [Unknown]
  - Pulmonary mass [Unknown]
  - Breast disorder [Unknown]
  - Neutropenia [Unknown]
  - Treatment failure [Unknown]
  - Anaemia [Unknown]
  - Packed red blood cell transfusion [Unknown]
  - Hepatic enzyme increased [Unknown]

NARRATIVE: CASE EVENT DATE: 201807
